FAERS Safety Report 16430173 (Version 1)
Quarter: 2019Q2

REPORT INFORMATION
  Report Type: Spontaneous
  Country: JP (occurrence: JP)
  Receive Date: 20190614
  Receipt Date: 20190614
  Transmission Date: 20190711
  Serious: Yes (Hospitalization, Other)
  Sender: FDA-Public Use
  Company Number: JP-AMGEN-JPNSP2019094962

PATIENT
  Age: 8 Decade
  Sex: Male

DRUGS (12)
  1. RITUXIMAB. [Concomitant]
     Active Substance: RITUXIMAB
     Indication: LYMPHOMA
     Dosage: UNK
     Route: 041
  2. ETOPOSIDE. [Concomitant]
     Active Substance: ETOPOSIDE
     Indication: LYMPHOMA
     Dosage: UNK
     Route: 041
  3. ETOPOSIDE. [Concomitant]
     Active Substance: ETOPOSIDE
     Dosage: UNK (DOSE REDUCED BY 30%)
     Route: 041
  4. G-LASTA [Suspect]
     Active Substance: PEGFILGRASTIM
     Indication: COLONY STIMULATING FACTOR THERAPY
     Dosage: 3.6 MICROGRAM
     Route: 058
  5. PREDNISOLONE. [Concomitant]
     Active Substance: PREDNISOLONE
     Indication: LYMPHOMA
     Dosage: UNK
     Route: 048
  6. PROCARBAZINE HYDROCHLORIDE [Concomitant]
     Active Substance: PROCARBAZINE HYDROCHLORIDE
     Dosage: UNK (DOSE REDUCED BY 30%)
     Route: 048
  7. PREDNISOLONE. [Concomitant]
     Active Substance: PREDNISOLONE
     Dosage: UNK (DOSE REDUCED BY 30%)
     Route: 048
  8. G-LASTA [Suspect]
     Active Substance: PEGFILGRASTIM
     Dosage: 3.6 MICROGRAM
     Route: 058
  9. RITUXIMAB. [Concomitant]
     Active Substance: RITUXIMAB
     Dosage: UNK (DOSE REDUCED BY 30%)
     Route: 041
  10. CYCLOPHOSPHAMIDE. [Concomitant]
     Active Substance: CYCLOPHOSPHAMIDE
     Indication: LYMPHOMA
     Dosage: UNK
     Route: 041
  11. CYCLOPHOSPHAMIDE. [Concomitant]
     Active Substance: CYCLOPHOSPHAMIDE
     Dosage: UNK (DOSE REDUCED BY 30%)
     Route: 041
  12. PROCARBAZINE HYDROCHLORIDE [Concomitant]
     Active Substance: PROCARBAZINE HYDROCHLORIDE
     Indication: LYMPHOMA
     Dosage: UNK
     Route: 048

REACTIONS (2)
  - Drug ineffective [Recovered/Resolved]
  - Febrile neutropenia [Recovered/Resolved]
